FAERS Safety Report 15273972 (Version 2)
Quarter: 2018Q4

REPORT INFORMATION
  Report Type: Report from Study
  Country: None (occurrence: CA)
  Receive Date: 20180814
  Receipt Date: 20181031
  Transmission Date: 20190204
  Serious: Yes (Other)
  Sender: FDA-Public Use
  Company Number: CA-ABBVIE-18K-028-2368762-00

PATIENT
  Age: 74 Year
  Sex: Male

DRUGS (2)
  1. HUMIRA [Suspect]
     Active Substance: ADALIMUMAB
     Route: 058
     Dates: start: 201808
  2. HUMIRA [Suspect]
     Active Substance: ADALIMUMAB
     Indication: ANKYLOSING SPONDYLITIS
     Route: 058
     Dates: start: 20120913

REACTIONS (5)
  - Blood pressure systolic increased [Unknown]
  - Crohn^s disease [Unknown]
  - Abdominal distension [Recovering/Resolving]
  - Anaemia [Unknown]
  - Gastrointestinal polyp [Unknown]

NARRATIVE: CASE EVENT DATE: 201808
